FAERS Safety Report 19879519 (Version 2)
Quarter: 2021Q4

REPORT INFORMATION
  Report Type: Report from Study
  Country: CN (occurrence: None)
  Receive Date: 20210924
  Receipt Date: 20211123
  Transmission Date: 20220303
  Serious: Yes (Hospitalization)
  Sender: FDA-Public Use
  Company Number: CN-ROCHE-2677490

PATIENT
  Age: 51 Year
  Sex: Female
  Weight: 66 kg

DRUGS (4)
  1. ATEZOLIZUMAB [Suspect]
     Active Substance: ATEZOLIZUMAB
     Indication: Triple negative breast cancer
     Dosage: ON 11/SEP/2020, SHE RECEIVED MOST RECENT DOSE OF ATEZOLIZUMAB (840 MG) PRIOR TO ONSET OF SERIOUS ADV
     Route: 041
     Dates: start: 20200604
  2. PACLITAXEL [Suspect]
     Active Substance: PACLITAXEL
     Indication: Triple negative breast cancer
     Dosage: ON 20/AUG/2020, SHE RECEIVED MOST RECENT DOSE OF PACLITAXEL (135 MG) PRIOR TO ONSET OF SERIOUS ADVER
     Route: 042
     Dates: start: 20200604
  3. EPIRUBICIN [Suspect]
     Active Substance: EPIRUBICIN
     Indication: Triple negative breast cancer
     Dosage: ON 11/SEP/2020, SHE RECEIVED MOST RECENT DOSE OF EPIRUBICIN (150 MG) PRIOR TO ONSET OF SERIOUS ADVER
     Route: 042
     Dates: start: 20200827
  4. CYCLOPHOSPHAMIDE [Suspect]
     Active Substance: CYCLOPHOSPHAMIDE
     Indication: Triple negative breast cancer
     Dosage: ON 11/SEP/2020, SHE RECEIVED MOST RECENT DOSE OF CYCLOPHOSPHAMIDE (1000 MG) PRIOR TO ONSET OF SERIOU
     Route: 042
     Dates: start: 20200827

REACTIONS (1)
  - Infusion related reaction [Recovered/Resolved]

NARRATIVE: CASE EVENT DATE: 20200911
